FAERS Safety Report 15190317 (Version 1)
Quarter: 2018Q3

REPORT INFORMATION
  Report Type: Spontaneous
  Country: GB (occurrence: GB)
  Receive Date: 20180724
  Receipt Date: 20180724
  Transmission Date: 20181010
  Serious: Yes (Hospitalization)
  Sender: FDA-Public Use
  Company Number: GB-US WORLDMEDS, LLC-USW201807-001101

PATIENT
  Sex: Female

DRUGS (19)
  1. HYDROXOCOBALAMIN [Concomitant]
     Active Substance: HYDROXOCOBALAMIN
  2. DOMPERIDONE [Concomitant]
     Active Substance: DOMPERIDONE
  3. ATORVASTATIN [Concomitant]
     Active Substance: ATORVASTATIN
  4. PREGABALIN. [Concomitant]
     Active Substance: PREGABALIN
  5. ENSURE [Concomitant]
     Active Substance: AMINO ACIDS\DEXTROSE\ELECTROLYTES NOS\SOYBEAN OIL\VITAMINS
  6. APIXABAN [Concomitant]
     Active Substance: APIXABAN
  7. APOMORPHINE HYDROCHLORIDE [Suspect]
     Active Substance: APOMORPHINE HYDROCHLORIDE
     Indication: PRODUCT USED FOR UNKNOWN INDICATION
     Route: 058
     Dates: start: 20180208
  8. MADOPAR DISPERSIBLE [Concomitant]
     Indication: PARKINSON^S DISEASE
  9. SERTRALINE [Concomitant]
     Active Substance: SERTRALINE HYDROCHLORIDE
  10. MOVICOL [Concomitant]
     Active Substance: POLYETHYLENE GLYCOL 3350\POTASSIUM CHLORIDE\SODIUM BICARBONATE\SODIUM CHLORIDE
  11. APOMORPHINE HYDROCHLORIDE [Suspect]
     Active Substance: APOMORPHINE HYDROCHLORIDE
     Route: 058
     Dates: start: 20180208
  12. QUININE SULPHATE [Concomitant]
     Active Substance: QUININE SULFATE
  13. DIAZEPAM. [Concomitant]
     Active Substance: DIAZEPAM
  14. PARACETAMOL [Concomitant]
     Active Substance: ACETAMINOPHEN
  15. CO?CARELDOPA [Concomitant]
     Active Substance: CARBIDOPA\LEVODOPA
     Indication: PARKINSON^S DISEASE
  16. CODEINE PHOSPHATE [Concomitant]
     Active Substance: CODEINE PHOSPHATE
  17. CO?BENELDOPA [Concomitant]
     Active Substance: BENSERAZIDE HYDROCHLORIDE\LEVODOPA
     Indication: PARKINSON^S DISEASE
  18. COLECALCIFEROL 400 / CALCIUM CARBONATE 1.5MG [Concomitant]
  19. DARIFENACIN. [Concomitant]
     Active Substance: DARIFENACIN

REACTIONS (1)
  - Intestinal prolapse [Unknown]
